FAERS Safety Report 21381146 (Version 1)
Quarter: 2022Q3

REPORT INFORMATION
  Report Type: Spontaneous
  Country: US (occurrence: US)
  Receive Date: 20220927
  Receipt Date: 20220927
  Transmission Date: 20221027
  Serious: Yes (Hospitalization, Other)
  Sender: FDA-Public Use
  Company Number: US-MORPHOSYS US-2022-MOR002326-US

PATIENT
  Age: 74 Year
  Sex: Female

DRUGS (1)
  1. MONJUVI [Suspect]
     Active Substance: TAFASITAMAB-CXIX
     Indication: Product used for unknown indication
     Dosage: 1200 MILLIGRAM DAY 1, 4, 8, 15, AND 22 ON A 28 DAY CYCLE
     Dates: start: 20201106, end: 20201215

REACTIONS (4)
  - Pancytopenia [Unknown]
  - Hypotension [Unknown]
  - Dizziness [Unknown]
  - Fatigue [Unknown]

NARRATIVE: CASE EVENT DATE: 20201219
